FAERS Safety Report 11702812 (Version 1)
Quarter: 2015Q4

REPORT INFORMATION
  Report Type: Spontaneous
  Country: US (occurrence: US)
  Receive Date: 20151105
  Receipt Date: 20151105
  Transmission Date: 20160304
  Serious: Yes (Other)
  Sender: FDA-Public Use
  Company Number: US-GLAXOSMITHKLINE-US2015156983

PATIENT
  Sex: Male

DRUGS (4)
  1. VALTREX [Suspect]
     Active Substance: VALACYCLOVIR HYDROCHLORIDE
     Indication: HERPES VIRUS INFECTION
     Dosage: 500 MG ORAL BID
     Route: 048
  2. PRED FORTE [Concomitant]
     Active Substance: PREDNISOLONE ACETATE
     Route: 061
  3. BENICAR [Concomitant]
     Active Substance: OLMESARTAN MEDOXOMIL
  4. VALACYCLOVIR [Suspect]
     Active Substance: VALACYCLOVIR HYDROCHLORIDE
     Indication: HERPES VIRUS INFECTION
     Dosage: 500 MG, ORAL BID
     Route: 048
     Dates: start: 2013

REACTIONS (4)
  - Corneal transplant [Recovered/Resolved]
  - Drug ineffective [Unknown]
  - Herpes ophthalmic [Recovered/Resolved]
  - Product substitution issue [Unknown]

NARRATIVE: CASE EVENT DATE: 2006
